FAERS Safety Report 8555383-8 (Version None)
Quarter: 2012Q3

REPORT INFORMATION
  Report Type: 
  Country: None (occurrence: None)
  Receive Date: 20120731
  Receipt Date: 20120330
  Transmission Date: 20120928
  Serious: No
  Sender: FDA-Public Use
  Company Number: US-ASTRAZENECA-2011SE26772

PATIENT
  Age: 82 Year
  Sex: Female

DRUGS (2)
  1. SEROQUEL [Suspect]
     Indication: CYCLOTHYMIC DISORDER
     Route: 048
  2. SEROQUEL [Suspect]
     Indication: BIPOLAR DISORDER
     Route: 048

REACTIONS (5)
  - INSOMNIA [None]
  - OFF LABEL USE [None]
  - INTENTIONAL DRUG MISUSE [None]
  - EYE INJURY [None]
  - HYPOACUSIS [None]
